FAERS Safety Report 16315483 (Version 1)
Quarter: 2019Q2

REPORT INFORMATION
  Report Type: Spontaneous
  Country: US (occurrence: US)
  Receive Date: 20190515
  Receipt Date: 20190515
  Transmission Date: 20190711
  Serious: No
  Sender: FDA-Public Use
  Company Number: US-SA-2019SA125378

PATIENT
  Age: 21 Year
  Sex: Female

DRUGS (7)
  1. MARLISSA [Concomitant]
     Active Substance: ETHINYL ESTRADIOL\LEVONORGESTREL
  2. PREDNISONE. [Concomitant]
     Active Substance: PREDNISONE
  3. FIORICET [Concomitant]
     Active Substance: ACETAMINOPHEN\BUTALBITAL\CAFFEINE
  4. HYLATOPICPLUS [Concomitant]
     Active Substance: EMOLLIENTS
  5. GABAPENTIN. [Concomitant]
     Active Substance: GABAPENTIN
  6. TRIAMCINOLONE [Concomitant]
     Active Substance: TRIAMCINOLONE
  7. DUPIXENT [Suspect]
     Active Substance: DUPILUMAB
     Indication: DERMATITIS ATOPIC
     Dosage: 300 MG, QOW
     Route: 058
     Dates: start: 20190326

REACTIONS (4)
  - Dry skin [Not Recovered/Not Resolved]
  - Erythema of eyelid [Not Recovered/Not Resolved]
  - Erythema [Not Recovered/Not Resolved]
  - Eyelid skin dryness [Not Recovered/Not Resolved]

NARRATIVE: CASE EVENT DATE: 201904
